FAERS Safety Report 4542024-X (Version None)
Quarter: 2004Q4

REPORT INFORMATION
  Report Type: 
  Country: None (occurrence: None)
  Receive Date: 20041227
  Receipt Date: 20041208
  Transmission Date: 20050328
  Serious: Yes (Life-Threatening)
  Sender: FDA-Public Use
  Company Number: 2004-0007837

PATIENT
  Sex: Male

DRUGS (5)
  1. HEPSERA [Suspect]
     Indication: HEPATITIS
  2. HEPSERA [Suspect]
     Indication: PROPHYLAXIS
  3. NEORAL [Concomitant]
  4. CELLCEPT [Concomitant]
  5. SOLUPRED (PREDNISOLONE SODIUM SULFOBENZOATE) [Concomitant]

REACTIONS (1)
  - RHABDOMYOLYSIS [None]
